FAERS Safety Report 19707773 (Version 2)
Quarter: 2021Q3

REPORT INFORMATION
  Report Type: Spontaneous
  Country: US (occurrence: US)
  Receive Date: 20210817
  Receipt Date: 20210819
  Transmission Date: 20211014
  Serious: Yes (Other)
  Sender: FDA-Public Use
  Company Number: US-PFIZER INC-2021454447

PATIENT
  Age: 52 Year
  Sex: Female
  Weight: 108.84 kg

DRUGS (2)
  1. SUTENT [Suspect]
     Active Substance: SUNITINIB MALATE
     Indication: RENAL CANCER
     Dosage: 37.5 MG, DAILY FOR 4 WEEKS (EVERY DAY FOR 4 WEEKS ON TREATMENT THEN 2 WEEKS OFF)
     Route: 048
     Dates: start: 20210503, end: 2021
  2. SUTENT [Suspect]
     Active Substance: SUNITINIB MALATE
     Dosage: 25 MG, CYCLIC (DAILY FOR 4 WEEKS ON, THEN TWO WEEK)
     Route: 048
     Dates: start: 2021

REACTIONS (5)
  - Arthralgia [Unknown]
  - Thyroid disorder [Unknown]
  - Fatigue [Unknown]
  - White blood cell count decreased [Unknown]
  - Nausea [Unknown]

NARRATIVE: CASE EVENT DATE: 2021
